FAERS Safety Report 21842979 (Version 4)
Quarter: 2023Q2

REPORT INFORMATION
  Report Type: Report from Study
  Country: BR (occurrence: BR)
  Receive Date: 20230110
  Receipt Date: 20230404
  Transmission Date: 20230721
  Serious: Yes (Other)
  Sender: FDA-Public Use
  Company Number: BR-002147023-NVSC2023BR003313

PATIENT
  Age: 73 Year
  Sex: Female

DRUGS (3)
  1. COSENTYX [Suspect]
     Active Substance: SECUKINUMAB
     Indication: Product used for unknown indication
     Dosage: UNK
     Route: 065
     Dates: start: 20221031
  2. COSENTYX [Suspect]
     Active Substance: SECUKINUMAB
     Dosage: UNK
     Route: 065
  3. ISONIAZID [Concomitant]
     Active Substance: ISONIAZID
     Indication: Tuberculosis
     Dosage: UNK (STARTED 6 MONTHS AGO)
     Route: 065

REACTIONS (11)
  - Pneumonia [Recovered/Resolved]
  - Swelling face [Unknown]
  - Nasal congestion [Unknown]
  - Pharyngeal swelling [Unknown]
  - Catarrh [Unknown]
  - Cough [Unknown]
  - Headache [Unknown]
  - Osteoporosis [Unknown]
  - Dysarthria [Unknown]
  - Decreased immune responsiveness [Unknown]
  - Fear [Unknown]

NARRATIVE: CASE EVENT DATE: 20221101
